FAERS Safety Report 7189191-X (Version None)
Quarter: 2010Q4

REPORT INFORMATION
  Report Type: 
  Country: None (occurrence: None)
  Receive Date: 20101222
  Receipt Date: 20100804
  Transmission Date: 20110411
  Serious: No
  Sender: FDA-Public Use
  Company Number: US-AMGEN-TCS423059

PATIENT

DRUGS (5)
  1. ENBREL [Suspect]
     Indication: JUVENILE ARTHRITIS
     Dosage: 50 MG, QWK
     Route: 058
     Dates: start: 20080708
  2. FOLIC ACID [Concomitant]
  3. METHOTREXATE [Concomitant]
  4. SPIRONOLACTONE [Concomitant]
  5. CLINDAMYCIN PHOSPHATE/BENZOYL PEROXIDE [Concomitant]
     Dosage: UNK UNK, UNK

REACTIONS (3)
  - INJECTION SITE ERYTHEMA [None]
  - INJECTION SITE IRRITATION [None]
  - INJECTION SITE SWELLING [None]
